FAERS Safety Report 8129614-2 (Version None)
Quarter: 2012Q1

REPORT INFORMATION
  Report Type: 
  Country: None (occurrence: None)
  Receive Date: 20120210
  Receipt Date: 20120205
  Transmission Date: 20120608
  Serious: Yes (Hospitalization)
  Sender: FDA-Public Use
  Company Number: JP-GLAXOSMITHKLINE-B0764975A

PATIENT
  Sex: Male

DRUGS (5)
  1. DEPAKENE [Concomitant]
     Dosage: 800MG PER DAY
     Route: 048
     Dates: start: 20060701, end: 20110814
  2. LODOPIN [Concomitant]
     Dosage: 50MG PER DAY
     Route: 048
     Dates: start: 20050701, end: 20110722
  3. LITHIUM CARBONATE [Concomitant]
     Route: 048
     Dates: end: 20111114
  4. ABILIFY [Concomitant]
     Dosage: 24MG PER DAY
     Route: 048
     Dates: start: 20080701, end: 20110815
  5. LAMICTAL [Suspect]
     Indication: BIPOLAR I DISORDER
     Dosage: 25MG PER DAY
     Route: 048
     Dates: start: 20110704, end: 20110812

REACTIONS (11)
  - DEPRESSION SUICIDAL [None]
  - GENERALISED ERYTHEMA [None]
  - DRUG RASH WITH EOSINOPHILIA AND SYSTEMIC SYMPTOMS [None]
  - RESPIRATORY FAILURE [None]
  - PYREXIA [None]
  - VIRAL INFECTION [None]
  - RASH GENERALISED [None]
  - URTICARIA [None]
  - RASH [None]
  - DEPRESSION [None]
  - SWELLING [None]
